FAERS Safety Report 8182322-4 (Version None)
Quarter: 2012Q1

REPORT INFORMATION
  Report Type: 
  Country: None (occurrence: None)
  Receive Date: 20120302
  Receipt Date: 20120229
  Transmission Date: 20120608
  Serious: Yes (Hospitalization)
  Sender: FDA-Public Use
  Company Number: PHHO2012DE003615

PATIENT
  Sex: Female
  Weight: 74 kg

DRUGS (8)
  1. FTY [Suspect]
     Indication: MULTIPLE SCLEROSIS
     Dosage: 1.25 MG, QD
     Route: 065
     Dates: start: 20061127, end: 20110220
  2. FTY [Suspect]
     Dosage: 0.5 MG, QD
     Route: 048
     Dates: start: 20110221, end: 20120208
  3. HYDROCHLOROTHIAZIDE [Concomitant]
     Indication: HYPERTONIA
     Dosage: 25 MG, QD
     Route: 065
     Dates: start: 20030101, end: 20120208
  4. LEVOTHYROXINE SODIUM [Concomitant]
     Indication: HYPOTHYROIDISM
     Dosage: 100 MG, QD
     Route: 065
     Dates: start: 19980101, end: 20120208
  5. SEROQUEL [Concomitant]
     Indication: DEPRESSION
     Dosage: 50 MG, QD
     Route: 065
     Dates: start: 20080414, end: 20120208
  6. TRIMIPRAMINE MALEATE [Concomitant]
     Indication: DEPRESSION
     Dosage: UNK
     Dates: start: 20111228, end: 20120208
  7. FTY [Suspect]
     Dosage: 0.5 MG, QD
     Route: 048
     Dates: start: 20120210
  8. ENALAPRIL MALEATE [Concomitant]
     Indication: HYPERTONIA
     Dosage: 10 MG, TID
     Route: 065
     Dates: start: 20090405, end: 20120208

REACTIONS (1)
  - ADNEXA UTERI MASS [None]
